FAERS Safety Report 4508419-5 (Version None)
Quarter: 2004Q4

REPORT INFORMATION
  Report Type: 
  Country: None (occurrence: None)
  Receive Date: 20041123
  Receipt Date: 20040205
  Transmission Date: 20050328
  Serious: Yes (Other)
  Sender: FDA-Public Use
  Company Number: US-GLAXOSMITHKLINE-A0496756A

PATIENT
  Age: 42 Year
  Sex: Male

DRUGS (8)
  1. WELLBUTRIN [Suspect]
     Dosage: 100MG TWICE PER DAY
     Route: 048
     Dates: start: 20030101
  2. WELLBUTRIN [Suspect]
     Indication: DEPRESSION
     Dosage: 300MG PER DAY
     Dates: start: 20040126
  3. KLONOPIN [Concomitant]
  4. LAMICTAL [Concomitant]
  5. LITHIUM [Concomitant]
  6. ATIVAN [Concomitant]
  7. BUSPAR [Concomitant]
  8. INDERAL [Concomitant]

REACTIONS (3)
  - ABDOMINAL PAIN [None]
  - MANIA [None]
  - TINNITUS [None]
